FAERS Safety Report 8031643-4 (Version None)
Quarter: 2012Q1

REPORT INFORMATION
  Report Type: 
  Country: None (occurrence: None)
  Receive Date: 20120109
  Receipt Date: 20111229
  Transmission Date: 20120608
  Serious: Yes (Hospitalization)
  Sender: FDA-Public Use
  Company Number: US-ELI_LILLY_AND_COMPANY-US201105002250

PATIENT
  Sex: Female

DRUGS (2)
  1. FORTEO [Suspect]
     Indication: OSTEOPOROSIS
     Dosage: 20 UG, QD
     Route: 065
     Dates: start: 20100301
  2. FORTEO [Suspect]
     Dosage: 20 UG, QD
     Route: 065

REACTIONS (2)
  - GINGIVAL DISORDER [None]
  - CARDIAC PACEMAKER INSERTION [None]
